FAERS Safety Report 6316772-5 (Version None)
Quarter: 2009Q3

REPORT INFORMATION
  Report Type: 
  Country: None (occurrence: None)
  Receive Date: 20090820
  Receipt Date: 20090817
  Transmission Date: 20100115
  Serious: Yes (Death, Life-Threatening, Other)
  Sender: FDA-Public Use
  Company Number: PHHY2009JP29417

PATIENT
  Age: 17 Year
  Sex: Male

DRUGS (6)
  1. SANDIMMUNE [Suspect]
     Indication: STEM CELL TRANSPLANT
     Dosage: 3 MG/DAY
     Route: 042
     Dates: start: 20080201
  2. MYCOPHENOLATE MOFETIL [Suspect]
     Indication: STEM CELL TRANSPLANT
     Dosage: 1500 MG DAILY
     Route: 048
     Dates: start: 20080201
  3. MYCOPHENOLATE MOFETIL [Suspect]
     Indication: PROPHYLAXIS AGAINST GRAFT VERSUS HOST DISEASE
  4. CYTARABINE [Suspect]
     Indication: BONE MARROW CONDITIONING REGIMEN
     Dosage: 12 MG/M2, UNK
  5. CYCLOPHOSPHAMIDE [Suspect]
     Indication: BONE MARROW CONDITIONING REGIMEN
     Dosage: 120 MG/KG, UNK
  6. IRRADIATION [Suspect]
     Indication: BONE MARROW CONDITIONING REGIMEN
     Dosage: 12 GY, UNK

REACTIONS (6)
  - ACUTE MYELOID LEUKAEMIA [None]
  - CHLOROMA [None]
  - LEFT VENTRICULAR DYSFUNCTION [None]
  - MULTI-ORGAN FAILURE [None]
  - THROMBOTIC MICROANGIOPATHY [None]
  - VENOOCCLUSIVE LIVER DISEASE [None]
